FAERS Safety Report 20235723 (Version 2)
Quarter: 2022Q1

REPORT INFORMATION
  Report Type: Spontaneous
  Country: US (occurrence: US)
  Receive Date: 20211228
  Receipt Date: 20220209
  Transmission Date: 20220423
  Serious: Yes (Hospitalization)
  Sender: FDA-Public Use
  Company Number: US-BIOVITRUM-2021US12527

PATIENT
  Sex: Female

DRUGS (3)
  1. SYNAGIS [Suspect]
     Active Substance: PALIVIZUMAB
     Indication: Antiviral prophylaxis
     Dosage: (100MG/ML), (50MG/0.5ML)
     Route: 030
     Dates: start: 20210915
  2. SYNAGIS [Suspect]
     Active Substance: PALIVIZUMAB
     Indication: Chronic respiratory failure
  3. SYNAGIS [Suspect]
     Active Substance: PALIVIZUMAB
     Indication: Congenital diaphragmatic hernia

REACTIONS (1)
  - Hospitalisation [Unknown]
